FAERS Safety Report 9225016 (Version 1)
Quarter: 2013Q2

REPORT INFORMATION
  Report Type: Spontaneous
  Country: BR (occurrence: BR)
  Receive Date: 20130411
  Receipt Date: 20130411
  Transmission Date: 20140414
  Serious: Yes (Other)
  Sender: FDA-Public Use
  Company Number: BR-JNJFOC-20130402997

PATIENT
  Age: 3 Month
  Sex: Male

DRUGS (1)
  1. MYLICON [Suspect]
     Indication: MUSCLE SPASMS
     Route: 048

REACTIONS (3)
  - Somnolence [Recovered/Resolved]
  - Accidental exposure to product [Unknown]
  - Product dropper issue [Unknown]
